FAERS Safety Report 7073666-8 (Version None)
Quarter: 2010Q4

REPORT INFORMATION
  Report Type: 
  Country: None (occurrence: None)
  Receive Date: 20101029
  Receipt Date: 20100728
  Transmission Date: 20110411
  Serious: Yes (Hospitalization)
  Sender: FDA-Public Use
  Company Number: A0872735A

PATIENT
  Sex: Female

DRUGS (8)
  1. ADVAIR DISKUS 100/50 [Suspect]
     Indication: BRONCHIECTASIS
     Dosage: 1PUFF TWICE PER DAY
     Route: 055
     Dates: start: 20100601
  2. ASPIRIN [Concomitant]
  3. CHOLESTYRAMINE [Concomitant]
  4. IPRATROPIUM BROMIDE [Concomitant]
  5. TRAMADOL [Concomitant]
  6. PLAVIX [Concomitant]
  7. ATIVAN [Concomitant]
  8. DILTIAZEM [Concomitant]

REACTIONS (1)
  - PNEUMONIA [None]
